FAERS Safety Report 24935843 (Version 2)
Quarter: 2025Q1

REPORT INFORMATION
  Report Type: Spontaneous
  Country: US (occurrence: US)
  Receive Date: 20250206
  Receipt Date: 20250214
  Transmission Date: 20250409
  Serious: Yes (Hospitalization, Other)
  Sender: JUBILANT
  Company Number: US-JUBILANT CADISTA PHARMACEUTICALS-2025US000134

PATIENT
  Age: 68 Year
  Sex: Female

DRUGS (36)
  1. RISPERIDONE [Suspect]
     Active Substance: RISPERIDONE
     Indication: Schizophrenia
     Dosage: 12 MG, ONCE PER DAY (DIVIDED IN 8 MG IN MORNING AND 4 MG IN EVENING ) DAILY
  2. RISPERIDONE [Suspect]
     Active Substance: RISPERIDONE
     Dosage: 12 MG, ONCE PER DAY (4MG IN THE MORNING AND 8MG IN THE EVENING) (DAY 1)
     Route: 065
  3. RISPERIDONE [Suspect]
     Active Substance: RISPERIDONE
     Dosage: 12 MG, ONCE PER DAY (4MG IN THE MORNING AND 8MG IN THE EVENING) (DAY 2)
  4. RISPERIDONE [Suspect]
     Active Substance: RISPERIDONE
     Dosage: 4 MG, 2 TIMES PER DAY (DAY 3)
     Route: 065
  5. RISPERIDONE [Suspect]
     Active Substance: RISPERIDONE
     Dosage: 4 MG, 2 TIMES PER DAY (DAY 4)
     Route: 065
  6. RISPERIDONE [Suspect]
     Active Substance: RISPERIDONE
     Dosage: 3 MG, 2 TIMES PER DAY (DAY 5)
     Route: 065
  7. RISPERIDONE [Suspect]
     Active Substance: RISPERIDONE
     Dosage: 3 MG, 2 TIMES PER DAY (DAY 6)
     Route: 065
  8. RISPERIDONE [Suspect]
     Active Substance: RISPERIDONE
     Dosage: 3 MG, 2 TIMES PER DAY (DAY 7)
     Route: 065
  9. RISPERIDONE [Suspect]
     Active Substance: RISPERIDONE
     Dosage: 3 MG, 2 TIMES PER DAY (DAY 8)
     Route: 065
  10. RISPERIDONE [Suspect]
     Active Substance: RISPERIDONE
     Dosage: 3 MG, 2 TIMES PER DAY (DAY 9)
     Route: 065
  11. RISPERIDONE [Suspect]
     Active Substance: RISPERIDONE
     Dosage: 2 MG, 2 TIMES PER DAY (DAY 10)
     Route: 065
  12. RISPERIDONE [Suspect]
     Active Substance: RISPERIDONE
     Dosage: 1 MG, 2 TIMES PER DAY (DAY 11)
     Route: 065
  13. RISPERIDONE [Suspect]
     Active Substance: RISPERIDONE
     Dosage: 0.5 MG, 2 TIMES PER DAY (DAY 12)
     Route: 065
  14. CLOZAPINE [Interacting]
     Active Substance: CLOZAPINE
     Indication: Schizophrenia
     Dosage: 12.5 MG, ONCE PER DAY (DAY 1)
     Route: 065
  15. CLOZAPINE [Interacting]
     Active Substance: CLOZAPINE
     Dosage: 25 MG, 2 TIMES PER DAY (DAY 2)
     Route: 065
  16. CLOZAPINE [Interacting]
     Active Substance: CLOZAPINE
     Dosage: 50 MG, 2 TIMES PER DAY (DAY 3)
     Route: 065
  17. CLOZAPINE [Interacting]
     Active Substance: CLOZAPINE
     Dosage: 75 MG, 2 TIMES PER DAY (DAY 4)
  18. CLOZAPINE [Interacting]
     Active Substance: CLOZAPINE
     Dosage: 100 MG, 2 TIMES PER DAY (DAY 5)
     Route: 065
  19. CLOZAPINE [Interacting]
     Active Substance: CLOZAPINE
     Dosage: 100 MG, 2 TIMES PER DAY (DAY 6)
     Route: 065
  20. CLOZAPINE [Interacting]
     Active Substance: CLOZAPINE
     Dosage: 100 MG, 2 TIMES PER DAY (DAY 7)
     Route: 065
  21. CLOZAPINE [Interacting]
     Active Substance: CLOZAPINE
     Dosage: 100 MG, 2 TIMES PER DAY (DAY 8)
     Route: 065
  22. CLOZAPINE [Interacting]
     Active Substance: CLOZAPINE
     Dosage: 100 MG, 2 TIMES PER DAY (DAY 9)
     Route: 065
  23. CLOZAPINE [Interacting]
     Active Substance: CLOZAPINE
     Dosage: 100 MG, 2 TIMES PER DAY (DAY 10)
     Route: 065
  24. CLOZAPINE [Interacting]
     Active Substance: CLOZAPINE
     Dosage: 100 MG, 2 TIMES PER DAY (DAY 11)
     Route: 065
  25. CLOZAPINE [Interacting]
     Active Substance: CLOZAPINE
     Dosage: 100 MG, 2 TIMES PER DAY (DAY 12)
     Route: 065
  26. CLOZAPINE [Interacting]
     Active Substance: CLOZAPINE
     Dosage: 100 MG, 2 TIMES PER DAY (DAY 13)
     Route: 065
  27. CLOZAPINE [Interacting]
     Active Substance: CLOZAPINE
     Dosage: 100 MG, 2 TIMES PER DAY (DAY 14)
     Route: 065
  28. CLOZAPINE [Interacting]
     Active Substance: CLOZAPINE
     Dosage: 100 MG, 2 TIMES PER DAY (DAY 15)
     Route: 065
  29. CLOZAPINE [Interacting]
     Active Substance: CLOZAPINE
     Dosage: 100 MG, 2 TIMES PER DAY (DAY 16)
     Route: 065
  30. CLOZAPINE [Interacting]
     Active Substance: CLOZAPINE
     Route: 065
  31. CLOZAPINE [Interacting]
     Active Substance: CLOZAPINE
     Route: 065
  32. CLOZAPINE [Interacting]
     Active Substance: CLOZAPINE
     Route: 065
  33. CLOZAPINE [Interacting]
     Active Substance: CLOZAPINE
     Route: 065
  34. FLUOXETINE [Interacting]
     Active Substance: FLUOXETINE HYDROCHLORIDE
     Indication: Schizophrenia
     Dosage: 60 MG, ONCE PER DAY
     Route: 065
  35. METOPROLOL SUCCINATE [Interacting]
     Active Substance: METOPROLOL SUCCINATE
     Indication: Hypertension
     Dosage: 100 MG, ONCE PER DAY
     Route: 065
  36. TRAZODONE [Concomitant]
     Active Substance: TRAZODONE HYDROCHLORIDE
     Indication: Schizophrenia
     Dosage: 50 MG, ONCE PER DAY (AT NIGHT)
     Route: 065

REACTIONS (3)
  - Hallucination, auditory [Unknown]
  - Drug interaction [Unknown]
  - Antipsychotic drug level increased [Recovered/Resolved]
